FAERS Safety Report 10456644 (Version 3)
Quarter: 2014Q3

REPORT INFORMATION
  Report Type: Spontaneous
  Country: JP (occurrence: JP)
  Receive Date: 20140916
  Receipt Date: 20140918
  Transmission Date: 20150326
  Serious: Yes (Hospitalization, Other)
  Sender: FDA-Public Use
  Company Number: JP-PFIZER INC-2013363188

PATIENT
  Age: 61 Year
  Sex: Female

DRUGS (4)
  1. DOCETAXEL [Suspect]
     Active Substance: DOCETAXEL
     Indication: BREAST CANCER
     Dosage: 75 MG/M2, CYCLIC X 4 COURSES/CUMULATIVE DOSE 300MG/M2
     Dates: start: 200611
  2. CYCLOPHOSPHAMIDE. [Suspect]
     Active Substance: CYCLOPHOSPHAMIDE
     Indication: BREAST CANCER
     Dosage: 500 MG/M2, CYCLIC X 4 COURSES  (CUMULATIVE DOSE 2000 MG/M2)
     Dates: start: 200702, end: 200704
  3. FARMORUBICIN [Suspect]
     Active Substance: EPIRUBICIN HYDROCHLORIDE
     Indication: BREAST CANCER
     Dosage: 100 MG/M2, CYCLIC CUMULATIVE DOSE 240MG/M2
     Dates: end: 200704
  4. 5-FU [Suspect]
     Active Substance: FLUOROURACIL
     Indication: BREAST CANCER
     Dosage: 500 MG/M2, CYCLIC X 4 COURSES (CUMULATIVE DOSE 2000 MG/M2)
     Dates: start: 200702, end: 200704

REACTIONS (2)
  - Endocardial fibrosis [Unknown]
  - Cardiac failure acute [Recovered/Resolved]
